FAERS Safety Report 10009596 (Version 1)
Quarter: 2014Q1

REPORT INFORMATION
  Report Type: Spontaneous
  Country: US (occurrence: US)
  Receive Date: 20140312
  Receipt Date: 20140312
  Transmission Date: 20141002
  Serious: No
  Sender: FDA-Public Use
  Company Number: US-INCYTE CORPORATION-2012IN002305

PATIENT
  Age: 48 Year
  Sex: Female
  Weight: 99.77 kg

DRUGS (2)
  1. JAKAFI [Suspect]
     Dosage: 10 MG, BID
     Route: 048
     Dates: start: 201203
  2. ARMOUR THYROID [Concomitant]
     Dosage: 120 MG, UNK
     Route: 048

REACTIONS (3)
  - Vision blurred [Unknown]
  - Weight increased [Unknown]
  - Dizziness [Unknown]
